FAERS Safety Report 7267596-6 (Version None)
Quarter: 2011Q1

REPORT INFORMATION
  Report Type: 
  Country: None (occurrence: None)
  Receive Date: 20110121
  Receipt Date: 20110106
  Transmission Date: 20110831
  Serious: Yes (Life-Threatening, Hospitalization)
  Sender: FDA-Public Use
  Company Number: AUR-APL-2010-03013

PATIENT
  Age: 30 Year
  Sex: Female

DRUGS (3)
  1. METOPROLOL [Suspect]
  2. DILTIAZEM [Suspect]
  3. AMIODARONE HCL [Suspect]

REACTIONS (9)
  - OVERDOSE [None]
  - ABDOMINAL PAIN [None]
  - ANURIA [None]
  - MITRAL VALVE INCOMPETENCE [None]
  - BLOOD GLUCOSE INCREASED [None]
  - DRUG LEVEL INCREASED [None]
  - CARDIAC HYPERTROPHY [None]
  - CARDIOGENIC SHOCK [None]
  - CONFUSIONAL STATE [None]
